FAERS Safety Report 18752404 (Version 3)
Quarter: 2021Q1

REPORT INFORMATION
  Report Type: Spontaneous
  Country: US (occurrence: US)
  Receive Date: 20210118
  Receipt Date: 20210311
  Transmission Date: 20210419
  Serious: Yes (Death)
  Sender: FDA-Public Use
  Company Number: US-PFIZER INC-2021020775

PATIENT
  Age: 22 Year
  Sex: Male

DRUGS (7)
  1. PROPRANOLOL [Concomitant]
     Active Substance: PROPRANOLOL HYDROCHLORIDE
     Indication: AGITATION
     Dosage: UNK
  2. LITHIUM. [Concomitant]
     Active Substance: LITHIUM
     Indication: ANXIETY
  3. PERPHENAZINE. [Concomitant]
     Active Substance: PERPHENAZINE
     Indication: AGITATION
  4. DROPERIDOL. [Suspect]
     Active Substance: DROPERIDOL
     Dosage: 5 MG
     Route: 030
  5. PROPRANOLOL [Concomitant]
     Active Substance: PROPRANOLOL HYDROCHLORIDE
     Indication: ANXIETY
  6. LITHIUM. [Concomitant]
     Active Substance: LITHIUM
     Indication: AGITATION
     Dosage: UNK
  7. PERPHENAZINE. [Concomitant]
     Active Substance: PERPHENAZINE
     Indication: ANXIETY
     Dosage: UNK

REACTIONS (1)
  - Cardiac arrest [Fatal]
